FAERS Safety Report 26023713 (Version 2)
Quarter: 2025Q4

REPORT INFORMATION
  Report Type: Spontaneous
  Country: US (occurrence: US)
  Receive Date: 20251111
  Receipt Date: 20251111
  Transmission Date: 20260118
  Serious: Yes (Other)
  Sender: JOHNSON AND JOHNSON
  Company Number: US-JNJFOC-20251142904

PATIENT
  Sex: Female

DRUGS (2)
  1. SPRAVATO [Suspect]
     Active Substance: ESKETAMINE
     Indication: Depression
     Dosage: ^84 MG, 16 TOTAL DOSES^
     Route: 045
     Dates: start: 20250805, end: 20251031
  2. SPRAVATO [Suspect]
     Active Substance: ESKETAMINE
     Dosage: ^56 MG, 1 TOTAL DOSE^
     Route: 045
     Dates: start: 20250722, end: 20250722

REACTIONS (3)
  - Adverse event [Unknown]
  - Product delivery mechanism issue [Unknown]
  - Product quality control issue [Unknown]

NARRATIVE: CASE EVENT DATE: 20250101
